FAERS Safety Report 8207512-3 (Version None)
Quarter: 2012Q1

REPORT INFORMATION
  Report Type: 
  Country: None (occurrence: None)
  Receive Date: 20120227
  Receipt Date: 20111031
  Transmission Date: 20120608
  Serious: No
  Sender: FDA-Public Use
  Company Number: 339212

PATIENT
  Age: 56 Year
  Sex: Female

DRUGS (1)
  1. VICTOZA [Suspect]
     Indication: PRODUCT USED FOR UNKNOWN INDICATION
     Dosage: 1.2 MG, QD, SUBCUTANEOUS ; 0.6 MG, QD, SUBCUTANEOUS
     Route: 058
     Dates: start: 20110701

REACTIONS (5)
  - VULVOVAGINAL BURNING SENSATION [None]
  - VULVOVAGINAL DISCOMFORT [None]
  - NAUSEA [None]
  - VULVOVAGINAL INJURY [None]
  - VULVOVAGINAL MYCOTIC INFECTION [None]
